FAERS Safety Report 11102640 (Version 2)
Quarter: 2015Q3

REPORT INFORMATION
  Report Type: Report from Study
  Country: TH (occurrence: TH)
  Receive Date: 20150511
  Receipt Date: 20150929
  Transmission Date: 20151125
  Serious: Yes (Death, Hospitalization)
  Sender: FDA-Public Use
  Company Number: TH-ROCHE-1570275

PATIENT
  Age: 57 Year
  Sex: Male
  Weight: 52.4 kg

DRUGS (1)
  1. MABTHERA [Suspect]
     Active Substance: RITUXIMAB
     Indication: DIFFUSE LARGE B-CELL LYMPHOMA
     Route: 042
     Dates: start: 20141001

REACTIONS (3)
  - Diffuse large B-cell lymphoma refractory [Fatal]
  - Febrile neutropenia [Unknown]
  - Septic shock [Unknown]

NARRATIVE: CASE EVENT DATE: 20150426
